FAERS Safety Report 7406160-2 (Version None)
Quarter: 2011Q2

REPORT INFORMATION
  Report Type: 
  Country: None (occurrence: None)
  Receive Date: 20110411
  Receipt Date: 20110405
  Transmission Date: 20111010
  Serious: Yes (Hospitalization)
  Sender: FDA-Public Use
  Company Number: DE-ABBOTT-11P-062-0717285-00

PATIENT
  Sex: Male
  Weight: 79 kg

DRUGS (6)
  1. BEER [Suspect]
     Indication: PRODUCT USED FOR UNKNOWN INDICATION
     Dosage: 9 BOTTLES OF BEER
     Route: 048
     Dates: start: 20110405, end: 20110405
  2. LEXOTANIL [Suspect]
     Indication: PRODUCT USED FOR UNKNOWN INDICATION
     Route: 048
     Dates: start: 20110405, end: 20110405
  3. AMOXICILLIN [Suspect]
     Indication: PRODUCT USED FOR UNKNOWN INDICATION
     Route: 048
     Dates: start: 20110405, end: 20110405
  4. TAMSULOSIN [Suspect]
     Indication: PRODUCT USED FOR UNKNOWN INDICATION
     Route: 048
     Dates: start: 20110405, end: 20110405
  5. COTRIM [Suspect]
     Indication: PRODUCT USED FOR UNKNOWN INDICATION
     Route: 048
     Dates: start: 20110405, end: 20110405
  6. KLACID [Suspect]
     Indication: PRODUCT USED FOR UNKNOWN INDICATION
     Route: 048
     Dates: start: 20110405, end: 20110405

REACTIONS (2)
  - INTENTIONAL DRUG MISUSE [None]
  - UNEVALUABLE EVENT [None]
